FAERS Safety Report 7705976-2 (Version None)
Quarter: 2011Q3

REPORT INFORMATION
  Report Type: 
  Country: None (occurrence: None)
  Receive Date: 20110824
  Receipt Date: 20110815
  Transmission Date: 20111222
  Serious: Yes (Hospitalization, Other)
  Sender: FDA-Public Use
  Company Number: PHHY2010GB03506

PATIENT
  Sex: Male

DRUGS (3)
  1. CLOZAPINE [Suspect]
     Indication: SCHIZOPHRENIA
     Route: 048
     Dates: start: 19990217
  2. RADIOTHERAPY [Concomitant]
     Route: 065
  3. CHEMOTHERAPEUTICS NOS [Concomitant]

REACTIONS (4)
  - TONGUE NEOPLASM MALIGNANT STAGE UNSPECIFIED [None]
  - WEIGHT DECREASED [None]
  - FATIGUE [None]
  - SOMNOLENCE [None]
